FAERS Safety Report 5298203-X (Version None)
Quarter: 2007Q1

REPORT INFORMATION
  Report Type: 
  Country: None (occurrence: None)
  Receive Date: 20070205
  Receipt Date: 20060906
  Transmission Date: 20070707
  Serious: Yes (Life-Threatening, Hospitalization)
  Sender: FDA-Public Use
  Company Number: US200608002362

PATIENT
  Age: 82 Year
  Sex: Female
  Weight: 67.6 kg

DRUGS (8)
  1. EVISTA [Suspect]
     Indication: OSTEOPOROSIS
     Dosage: 60 MG, ORAL
     Route: 048
     Dates: start: 20040201, end: 20060701
  2. SYNTHROID [Concomitant]
  3. ALLEGRA [Concomitant]
  4. TYLENOL  /USA/(PARACETAMOL) [Concomitant]
  5. LEXAPRO /USA/ (ESCITALOPRAM) [Concomitant]
  6. ACIPHEX [Concomitant]
  7. CALCIUM CARBONATE (CALCIUM CARBONATE) [Concomitant]
  8. VITAMIN D [Concomitant]

REACTIONS (1)
  - PULMONARY EMBOLISM [None]
